FAERS Safety Report 20317427 (Version 1)
Quarter: 2022Q1

REPORT INFORMATION
  Report Type: Spontaneous
  Country: US (occurrence: US)
  Receive Date: 20220110
  Receipt Date: 20220110
  Transmission Date: 20220423
  Serious: No
  Sender: FDA-Public Use
  Company Number: US-TEVA-2021-US-1995916

PATIENT
  Age: 63 Year
  Sex: Female

DRUGS (1)
  1. CLONIDINE [Suspect]
     Active Substance: CLONIDINE
     Dosage: .2 MILLIGRAM DAILY; STRENGTH: 0.2 MG / DAY
     Route: 065
     Dates: start: 2021

REACTIONS (3)
  - Product adhesion issue [Unknown]
  - Application site burn [Unknown]
  - Application site pruritus [Unknown]

NARRATIVE: CASE EVENT DATE: 20210101
